FAERS Safety Report 23238934 (Version 2)
Quarter: 2024Q1

REPORT INFORMATION
  Report Type: Spontaneous
  Country: US (occurrence: US)
  Receive Date: 20231129
  Receipt Date: 20240111
  Transmission Date: 20240410
  Serious: Yes (Hospitalization, Other)
  Sender: FDA-Public Use
  Company Number: US-HIKMA PHARMACEUTICALS USA INC.-US-H14001-23-67347

PATIENT
  Sex: Female

DRUGS (1)
  1. HEPARIN SODIUM [Suspect]
     Active Substance: HEPARIN SODIUM
     Indication: Deep vein thrombosis
     Dosage: 11 500 UNITS, TWICE A DAY
     Route: 065

REACTIONS (6)
  - Contusion [Unknown]
  - Abdominal injury [Not Recovered/Not Resolved]
  - Abdominal mass [Not Recovered/Not Resolved]
  - Injection site haematoma [Unknown]
  - Injection site pain [Not Recovered/Not Resolved]
  - Off label use [Unknown]
